FAERS Safety Report 4640351-9 (Version None)
Quarter: 2005Q2

REPORT INFORMATION
  Report Type: 
  Country: None (occurrence: None)
  Receive Date: 20050420
  Receipt Date: 20040324
  Transmission Date: 20051028
  Serious: No
  Sender: FDA-Public Use
  Company Number: US-GLAXOSMITHKLINE-A0504306A

PATIENT
  Age: 66 Year
  Sex: Male

DRUGS (5)
  1. LITHIUM CARBONATE [Suspect]
     Indication: MANIA
     Dosage: 600MG TWICE PER DAY
     Route: 048
  2. ATENOLOL [Concomitant]
  3. NORVASC [Concomitant]
  4. ACCUPRIL [Concomitant]
  5. ATARAX [Concomitant]

REACTIONS (1)
  - DRUG LEVEL FLUCTUATING [None]
